FAERS Safety Report 18535380 (Version 1)
Quarter: 2020Q4

REPORT INFORMATION
  Report Type: Spontaneous
  Country: US (occurrence: US)
  Receive Date: 20201123
  Receipt Date: 20201123
  Transmission Date: 20210114
  Serious: Yes (Death, Other)
  Sender: FDA-Public Use
  Company Number: US-EPIC PHARMA LLC-2020EPC00356

PATIENT
  Age: 31 Year
  Sex: Male
  Weight: 104.31 kg

DRUGS (3)
  1. OXYMORPHONE [Suspect]
     Active Substance: OXYMORPHONE
     Indication: ANXIETY
     Dosage: UNK
     Dates: start: 201903
  2. OXYCODONE [Suspect]
     Active Substance: OXYCODONE
  3. XANAX [Suspect]
     Active Substance: ALPRAZOLAM
     Indication: ANXIETY

REACTIONS (4)
  - Drug interaction [Fatal]
  - Dependence [Unknown]
  - Toxicity to various agents [Fatal]
  - Off label use [Unknown]

NARRATIVE: CASE EVENT DATE: 201903
